FAERS Safety Report 14670318 (Version 4)
Quarter: 2018Q4

REPORT INFORMATION
  Report Type: Report from Study
  Country: GR (occurrence: GR)
  Receive Date: 20180322
  Receipt Date: 20181226
  Transmission Date: 20190204
  Serious: Yes (Hospitalization)
  Sender: FDA-Public Use
  Company Number: GR-AMGEN-GRCNI2018037389

PATIENT
  Age: 57 Year
  Sex: Female
  Weight: 74 kg

DRUGS (12)
  1. CARFILZOMIB [Suspect]
     Active Substance: CARFILZOMIB
     Dosage: 40 MG/M2, UNK
     Route: 042
     Dates: start: 20180329
  2. BACTRIMEL [Concomitant]
     Active Substance: SULFAMETHOXAZOLE\TRIMETHOPRIM
     Dosage: 960 MG, UNK
     Dates: start: 20180214, end: 20180618
  3. DEXAMETHASONE. [Concomitant]
     Active Substance: DEXAMETHASONE
     Indication: PLASMA CELL MYELOMA
     Dosage: 40 MG, UNK
     Dates: start: 20180214
  4. DARATUMUMAB [Concomitant]
     Active Substance: DARATUMUMAB
     Dosage: 1200 MG, UNK
     Dates: start: 20180214, end: 20180329
  5. VALTREX [Concomitant]
     Active Substance: VALACYCLOVIR HYDROCHLORIDE
     Dosage: 500 MG, UNK
     Dates: start: 20180214, end: 20180618
  6. ZYLAPOUR [Concomitant]
     Dosage: 300 MG, UNK
     Dates: start: 20180214, end: 20180618
  7. LOPRESSOR [Concomitant]
     Active Substance: METOPROLOL TARTRATE
     Dosage: 100 MG, UNK
     Dates: start: 20170515, end: 20180618
  8. FERINJECT [Concomitant]
     Active Substance: FERRIC CARBOXYMALTOSE
     Dosage: 500 MG, UNK
     Dates: start: 20180228, end: 20180228
  9. CARFILZOMIB [Suspect]
     Active Substance: CARFILZOMIB
     Indication: PLASMA CELL MYELOMA
     Dosage: 56 MG/M2, UNK
     Route: 042
     Dates: start: 20180214
  10. DARATUMUMAB [Concomitant]
     Active Substance: DARATUMUMAB
     Dosage: UNK, UNK
  11. FILICINE [Concomitant]
     Dosage: 5 MG, UNK
     Dates: start: 20180214, end: 20180618
  12. LOSEC [Concomitant]
     Active Substance: OMEPRAZOLE
     Dosage: 20 MG, UNK
     Dates: start: 20180214, end: 20180618

REACTIONS (1)
  - Left ventricular dysfunction [Recovered/Resolved]

NARRATIVE: CASE EVENT DATE: 20180314
